FAERS Safety Report 8409232-9 (Version None)
Quarter: 2012Q2

REPORT INFORMATION
  Report Type: 
  Country: None (occurrence: None)
  Receive Date: 20120604
  Receipt Date: 20120530
  Transmission Date: 20120825
  Serious: Yes (Hospitalization)
  Sender: FDA-Public Use
  Company Number: US-TEVA-340690USA

PATIENT
  Sex: Male
  Weight: 82 kg

DRUGS (20)
  1. CARVEDILOL [Concomitant]
     Dosage: TWO TABLETS TWICE DAILY
  2. AMLODIPINE [Concomitant]
     Dosage: 7.5 MILLIGRAM;
  3. LISINOPRIL [Concomitant]
     Dosage: 1 PO TWICE DAILY
     Route: 048
  4. ASCORBIC ACID [Concomitant]
     Dosage: 2000 MILLIGRAM;
  5. UBIDECARENONE [Concomitant]
  6. IRON [Concomitant]
  7. COLCHICINE [Concomitant]
     Dosage: 1.2 MILLIGRAM;
  8. FINASTERIDE [Concomitant]
     Dosage: .4545 MILLIGRAM;
  9. COLECALCIFEROL [Concomitant]
     Dosage: 2000 MILLIGRAM;
  10. IDARUBICIN HCL [Suspect]
     Indication: ACUTE MYELOID LEUKAEMIA
     Route: 042
     Dates: start: 20120517
  11. ACETYLSALICYLIC ACID SRT [Concomitant]
     Dosage: ONE-HALF TABLET DAILY
  12. ISOSORBIDE MONONITRATE [Concomitant]
     Dosage: 60 MILLIGRAM;
  13. PRAVASTATIN SODIUM [Concomitant]
     Dosage: 20 MILLIGRAM;
  14. CLOPIDOGREL [Concomitant]
     Dosage: 75 MILLIGRAM;
  15. ULORIC [Concomitant]
     Dosage: 40 MILLIGRAM;
  16. FISH OIL [Concomitant]
  17. TREANDA [Suspect]
     Indication: ACUTE MYELOID LEUKAEMIA
     Route: 042
     Dates: start: 20120517
  18. NITROGLYCERIN [Concomitant]
  19. VICODIN [Concomitant]
     Indication: PAIN
     Dosage: 5/500 AS NEEDED
  20. FEXOFENADINE [Concomitant]

REACTIONS (1)
  - FEBRILE NEUTROPENIA [None]
